FAERS Safety Report 6356428-6 (Version None)
Quarter: 2009Q3

REPORT INFORMATION
  Report Type: 
  Country: None (occurrence: None)
  Receive Date: 20090911
  Receipt Date: 20090911
  Transmission Date: 20100115
  Serious: Yes (Hospitalization)
  Sender: FDA-Public Use
  Company Number: None

PATIENT
  Sex: Female
  Weight: 102.0593 kg

DRUGS (2)
  1. RANIBIZUMAB (GENENTECH) [Suspect]
     Indication: DIABETIC RETINOPATHY
     Dosage: 0.5MG/MONTH, INTRAVITREAL
     Dates: start: 20080822, end: 20081016
  2. RANIBIZUMAB (GENENTECH) [Suspect]
     Indication: IRIS NEOVASCULARISATION
     Dosage: 0.5MG/MONTH, INTRAVITREAL
     Dates: start: 20080822, end: 20081016

REACTIONS (5)
  - CONDITION AGGRAVATED [None]
  - DYSPNOEA [None]
  - FLUID OVERLOAD [None]
  - OEDEMA PERIPHERAL [None]
  - RENAL FAILURE CHRONIC [None]
